FAERS Safety Report 24264544 (Version 1)
Quarter: 2024Q3

REPORT INFORMATION
  Report Type: Spontaneous
  Country: US (occurrence: None)
  Receive Date: 20240828
  Receipt Date: 20240828
  Transmission Date: 20241017
  Serious: Yes (Hospitalization, Other)
  Sender: Public
  Company Number: None

PATIENT
  Age: 71 Year
  Sex: Female
  Weight: 90 kg

DRUGS (21)
  1. MISOPROSTOL [Suspect]
     Active Substance: MISOPROSTOL
     Indication: Ulcer
     Dosage: OTHER QUANTITY : 1 TABLET(S);?FREQUENCY : 4 TIMES A DAY;?
     Route: 048
     Dates: start: 20240727, end: 20240823
  2. TYLENOL [Concomitant]
  3. AMOXICILLIN [Concomitant]
     Active Substance: AMOXICILLIN
  4. OMEPRAZOLE [Concomitant]
     Active Substance: OMEPRAZOLE
  5. LEVOTHYROXINE SODIUM [Concomitant]
  6. LOSARTAN POTASSIUM [Concomitant]
  7. DEPAKOTE [Concomitant]
     Active Substance: DIVALPROEX SODIUM
  8. Rapatha [Concomitant]
  9. Vitamin D-3 [Concomitant]
  10. Probiotic [Concomitant]
  11. DUPIXENT [Concomitant]
  12. BUDESONIDE [Concomitant]
     Active Substance: BUDESONIDE
  13. Advair HVA [Concomitant]
  14. Spirva Respimat [Concomitant]
  15. Montelukast sod [Concomitant]
  16. SINGULAIR [Concomitant]
  17. ALBUTEROL SULFATE [Concomitant]
  18. ATROVENT [Concomitant]
  19. Sodium Chloride 0.9 Nab NEPH [Concomitant]
  20. PREDNISONE [Concomitant]
  21. MAGNESIUM [Concomitant]
     Active Substance: MAGNESIUM

REACTIONS (10)
  - Muscle spasms [None]
  - Vertigo [None]
  - Fall [None]
  - Head injury [None]
  - Tooth fracture [None]
  - Pain in jaw [None]
  - Dizziness [None]
  - Diarrhoea [None]
  - Vomiting [None]
  - Muscle spasms [None]

NARRATIVE: CASE EVENT DATE: 20240822
